FAERS Safety Report 7823902-2 (Version None)
Quarter: 2011Q4

REPORT INFORMATION
  Report Type: 
  Country: None (occurrence: None)
  Receive Date: 20111018
  Receipt Date: 20111018
  Transmission Date: 20120403
  Serious: Yes (Other)
  Sender: FDA-Public Use
  Company Number: None

PATIENT
  Age: 57 Year
  Sex: Female

DRUGS (1)
  1. FORTEO [Suspect]
     Dosage: 20MCG DAILY SQ
     Route: 058
     Dates: start: 20110110, end: 20111012

REACTIONS (5)
  - PAIN [None]
  - ARTHRALGIA [None]
  - MYALGIA [None]
  - NEURALGIA [None]
  - FATIGUE [None]
